FAERS Safety Report 4368709-6 (Version None)
Quarter: 2004Q2

REPORT INFORMATION
  Report Type: 
  Country: None (occurrence: None)
  Receive Date: 20040525
  Receipt Date: 20040514
  Transmission Date: 20050107
  Serious: Yes (Hospitalization)
  Sender: FDA-Public Use
  Company Number: 2004213925JP

PATIENT
  Age: 41 Year
  Sex: Male

DRUGS (5)
  1. DOSTINEX [Suspect]
     Indication: PROLACTINOMA
     Dosage: 0.25 MG, WEEKLY, ORAL
     Route: 048
     Dates: start: 20040303
  2. AKINETON [Concomitant]
  3. HALOPERIDOL [Concomitant]
  4. HALCION [Concomitant]
  5. LENDORMIN (BOTIZOLAM) [Concomitant]

REACTIONS (3)
  - AGITATION [None]
  - EXCITABILITY [None]
  - TREATMENT NONCOMPLIANCE [None]
